FAERS Safety Report 9816517 (Version 1)
Quarter: 2014Q1

REPORT INFORMATION
  Report Type: Spontaneous
  Country: US (occurrence: US)
  Receive Date: 20140114
  Receipt Date: 20140114
  Transmission Date: 20141002
  Serious: No
  Sender: FDA-Public Use
  Company Number: US-TEVA-454636USA

PATIENT
  Age: 37 Year
  Sex: Female
  Weight: 53.12 kg

DRUGS (2)
  1. PARAGARD 380A [Suspect]
     Indication: CONTRACEPTION
     Dates: start: 201305, end: 20140102
  2. VALTREX [Concomitant]

REACTIONS (1)
  - Device expulsion [Recovered/Resolved]
